FAERS Safety Report 18548161 (Version 1)
Quarter: 2020Q4

REPORT INFORMATION
  Report Type: Other
  Country: CA (occurrence: CA)
  Receive Date: 20201126
  Receipt Date: 20201126
  Transmission Date: 20210114
  Serious: Yes (Other)
  Sender: FDA-Public Use
  Company Number: CA-CELLTRION INC.-2020CA032166

PATIENT

DRUGS (9)
  1. ACTEMRA [Suspect]
     Active Substance: TOCILIZUMAB
     Indication: PRODUCT USED FOR UNKNOWN INDICATION
     Route: 065
  2. PREDNISONE. [Suspect]
     Active Substance: PREDNISONE
     Indication: PRODUCT USED FOR UNKNOWN INDICATION
     Route: 065
  3. ARAVA [Suspect]
     Active Substance: LEFLUNOMIDE
     Indication: PRODUCT USED FOR UNKNOWN INDICATION
     Dosage: 20 MG
     Route: 048
  4. XELJANZ [Suspect]
     Active Substance: TOFACITINIB CITRATE
     Indication: PRODUCT USED FOR UNKNOWN INDICATION
     Dosage: 5 MG, 2 EVERY 1 DAY
     Route: 048
  5. METHOTREXATE. [Suspect]
     Active Substance: METHOTREXATE
     Indication: PRODUCT USED FOR UNKNOWN INDICATION
     Route: 065
  6. RITUXIMAB (UNKNOWN) [Suspect]
     Active Substance: RITUXIMAB
     Indication: PRODUCT USED FOR UNKNOWN INDICATION
     Dosage: 1 GRAM
     Route: 042
  7. HYDROXYCHLOROQUINE [Suspect]
     Active Substance: HYDROXYCHLOROQUINE
     Indication: PRODUCT USED FOR UNKNOWN INDICATION
     Route: 065
  8. ENBREL [Suspect]
     Active Substance: ETANERCEPT
     Indication: PRODUCT USED FOR UNKNOWN INDICATION
     Dosage: 50 MG, 1 EVERY 1 WEEK
     Route: 058
  9. HUMIRA [Suspect]
     Active Substance: ADALIMUMAB
     Indication: PRODUCT USED FOR UNKNOWN INDICATION
     Dosage: 40 MG, 1 EVERY 2 WEEKS
     Route: 058

REACTIONS (24)
  - Blood pressure increased [Unknown]
  - Oedema peripheral [Unknown]
  - Injection site erythema [Unknown]
  - Abdominal discomfort [Unknown]
  - Gait disturbance [Unknown]
  - Spinal disorder [Unknown]
  - Swelling [Unknown]
  - Osteoporosis [Unknown]
  - Injection site bruising [Unknown]
  - Spinal operation [Unknown]
  - Haemorrhage [Unknown]
  - Dysphagia [Unknown]
  - Pain [Unknown]
  - Therapy non-responder [Unknown]
  - Contusion [Unknown]
  - Femur fracture [Unknown]
  - Injection site hypersensitivity [Unknown]
  - Osteoarthritis [Unknown]
  - Drug ineffective [Unknown]
  - Intervertebral disc degeneration [Unknown]
  - Back pain [Unknown]
  - Hypersensitivity [Unknown]
  - Pruritus [Unknown]
  - Rash [Unknown]
